FAERS Safety Report 13087567 (Version 1)
Quarter: 2017Q1

REPORT INFORMATION
  Report Type: Spontaneous
  Country: US (occurrence: US)
  Receive Date: 20170105
  Receipt Date: 20170105
  Transmission Date: 20170428
  Serious: No
  Sender: FDA-Public Use
  Company Number: US-TORRENT-00001310

PATIENT
  Sex: Female

DRUGS (1)
  1. LOSARTAN POTASSIUM (100 MG) + HCTZ (12.5MG) [Suspect]
     Active Substance: HYDROCHLOROTHIAZIDE\LOSARTAN POTASSIUM
     Indication: PRODUCT USED FOR UNKNOWN INDICATION
     Dosage: ONCE DAILY

REACTIONS (2)
  - Product odour abnormal [Unknown]
  - Drug ineffective [Unknown]
